FAERS Safety Report 19191476 (Version 2)
Quarter: 2021Q3

REPORT INFORMATION
  Report Type: Report from Study
  Country: JP (occurrence: JP)
  Receive Date: 20210429
  Receipt Date: 20210721
  Transmission Date: 20211014
  Serious: Yes (Life-Threatening, Hospitalization)
  Sender: FDA-Public Use
  Company Number: JP-JNJFOC-A-CH2017-157705

PATIENT
  Age: 38 Year
  Sex: Male

DRUGS (20)
  1. DIART [AZOSEMIDE] [Concomitant]
     Active Substance: AZOSEMIDE
  2. URINORM [Concomitant]
     Active Substance: BENZBROMARONE
  3. LOXONIN [Concomitant]
     Active Substance: LOXOPROFEN SODIUM
  4. FENTANYL. [Concomitant]
     Active Substance: FENTANYL
  5. CEFAMEZIN SODIUM [Concomitant]
     Active Substance: CEFAZOLIN SODIUM
     Indication: INFECTION PROPHYLAXIS
  6. MEROPENEM. [Concomitant]
     Active Substance: MEROPENEM
  7. FLOLAN [Suspect]
     Active Substance: EPOPROSTENOL SODIUM
     Indication: PULMONARY ARTERIAL HYPERTENSION
     Dosage: 167 NG/KG, PER MIN
     Route: 042
     Dates: start: 201006
  8. UNASYN [SULTAMICILLIN TOSILATE] [Concomitant]
     Active Substance: SULTAMICILLIN TOSYLATE
     Indication: INFECTION PROPHYLAXIS
  9. SODIUM RABEPRAZOLE [Concomitant]
     Active Substance: RABEPRAZOLE SODIUM
  10. THROMBIN [Concomitant]
     Active Substance: THROMBIN
  11. OXYGEN. [Concomitant]
     Active Substance: OXYGEN
  12. LASIX [Concomitant]
     Active Substance: FUROSEMIDE
  13. ASPARA K [Concomitant]
     Active Substance: POTASSIUM ASPARTATE
  14. SPIRONOLACTONE. [Concomitant]
     Active Substance: SPIRONOLACTONE
  15. OPSUMIT [Suspect]
     Active Substance: MACITENTAN
     Indication: PULMONARY ARTERIAL HYPERTENSION
     Dosage: 10 MG, OD
     Route: 048
     Dates: start: 20150730
  16. LOPEMIN [Concomitant]
  17. ZOLPIDEM TARTRATE. [Concomitant]
     Active Substance: ZOLPIDEM TARTRATE
     Indication: PROPHYLAXIS
  18. CEFLONIC [Concomitant]
     Active Substance: CEFOPERAZONE SODIUM\SULBACTAM SODIUM
  19. CALONAL [Concomitant]
     Active Substance: ACETAMINOPHEN
  20. REMINARON [Concomitant]
     Active Substance: GABEXATE MESYLATE
     Indication: PROPHYLAXIS

REACTIONS (5)
  - Blood loss anaemia [Recovering/Resolving]
  - Post procedural haemorrhage [Recovered/Resolved]
  - Hyperthyroidism [Recovering/Resolving]
  - Epistaxis [Recovering/Resolving]
  - Cholecystitis acute [Recovered/Resolved]

NARRATIVE: CASE EVENT DATE: 201510
